FAERS Safety Report 13083641 (Version 1)
Quarter: 2017Q1

REPORT INFORMATION
  Report Type: Report from Study
  Country: IT (occurrence: IT)
  Receive Date: 20170104
  Receipt Date: 20170104
  Transmission Date: 20170428
  Serious: Yes (Hospitalization)
  Sender: FDA-Public Use
  Company Number: IT-TEVA-725532ACC

PATIENT
  Age: 26 Year
  Sex: Female

DRUGS (4)
  1. PROMAZINE [Interacting]
     Active Substance: PROMAZINE
     Indication: INTENTIONAL SELF-INJURY
     Route: 065
  2. QUETIAPINE. [Interacting]
     Active Substance: QUETIAPINE
     Indication: INTENTIONAL SELF-INJURY
     Route: 065
  3. LEVOMEPROMAZINE [Interacting]
     Active Substance: LEVOMEPROMAZINE
     Indication: INTENTIONAL SELF-INJURY
     Route: 065
  4. LORAZEPAM. [Suspect]
     Active Substance: LORAZEPAM
     Indication: INTENTIONAL SELF-INJURY
     Route: 065

REACTIONS (4)
  - Somnolence [Unknown]
  - Abdominal pain [Unknown]
  - Drug interaction [Unknown]
  - Self-medication [Unknown]
